FAERS Safety Report 16023191 (Version 1)
Quarter: 2019Q1

REPORT INFORMATION
  Report Type: Spontaneous
  Country: CH (occurrence: CH)
  Receive Date: 20190301
  Receipt Date: 20190301
  Transmission Date: 20190418
  Serious: Yes (Other)
  Sender: FDA-Public Use
  Company Number: IND-CH-009507513-1902CHE008949

PATIENT
  Sex: Male

DRUGS (4)
  1. BRIDION [Suspect]
     Active Substance: SUGAMMADEX
     Dosage: 200 MILLIGRAM
     Dates: start: 201811, end: 201811
  2. ESMERON [Suspect]
     Active Substance: ROCURONIUM BROMIDE
     Indication: SURGERY
     Dosage: 20-30 MG / HOUR
     Dates: start: 201811
  3. BRIDION [Suspect]
     Active Substance: SUGAMMADEX
     Indication: SURGERY
     Dosage: 4 MILLIGRAM/KILOGRAM, ONCE
     Dates: start: 201811, end: 201811
  4. ESMERON [Suspect]
     Active Substance: ROCURONIUM BROMIDE
     Indication: NEUROMUSCULAR BLOCKING THERAPY

REACTIONS (7)
  - Underdose [Unknown]
  - Anaesthetic complication [Unknown]
  - Hypoxia [Recovered/Resolved]
  - Movement disorder [Unknown]
  - Feeling cold [Unknown]
  - Speech disorder [Unknown]
  - Premature recovery from anaesthesia [Recovered/Resolved]

NARRATIVE: CASE EVENT DATE: 201811
